FAERS Safety Report 6915531-X (Version None)
Quarter: 2010Q3

REPORT INFORMATION
  Report Type: 
  Country: None (occurrence: None)
  Receive Date: 20100804
  Receipt Date: 20100728
  Transmission Date: 20110219
  Serious: Yes (Hospitalization)
  Sender: FDA-Public Use
  Company Number: 2010SP038666

PATIENT
  Age: 78 Year
  Sex: Female

DRUGS (4)
  1. REFLEX (MIRTAZAPINE /01293201/) [Suspect]
     Indication: DEPRESSION
     Dosage: 15 MG;QD;PO
     Route: 048
     Dates: start: 20100525, end: 20100607
  2. SERTRALINE HYDROCHLORIDE [Concomitant]
  3. ZOLPIDEM TARTRATE [Concomitant]
  4. FLUNITRAZEPAM [Concomitant]

REACTIONS (3)
  - ANXIETY [None]
  - DYSPHAGIA [None]
  - TREMOR [None]
